FAERS Safety Report 13398296 (Version 1)
Quarter: 2017Q2

REPORT INFORMATION
  Report Type: Report from Study
  Country: US (occurrence: US)
  Receive Date: 20170403
  Receipt Date: 20170403
  Transmission Date: 20170830
  Serious: No
  Sender: FDA-Public Use
  Company Number: US-009507513-1703USA002357

PATIENT
  Sex: Female

DRUGS (1)
  1. NEXPLANON [Suspect]
     Active Substance: ETONOGESTREL
     Indication: CONTRACEPTION
     Dosage: UNK
     Route: 059

REACTIONS (11)
  - Affective disorder [Unknown]
  - Stress [Unknown]
  - Menometrorrhagia [Unknown]
  - Libido disorder [Unknown]
  - Frustration tolerance decreased [Unknown]
  - Dysmenorrhoea [Recovering/Resolving]
  - Anxiety [Unknown]
  - Fatigue [Unknown]
  - Implant site bruising [Unknown]
  - Implant site pain [Unknown]
  - Menstruation irregular [Recovering/Resolving]
